FAERS Safety Report 20704922 (Version 1)
Quarter: 2022Q2

REPORT INFORMATION
  Report Type: Spontaneous
  Country: US (occurrence: None)
  Receive Date: 20220413
  Receipt Date: 20220413
  Transmission Date: 20220720
  Serious: Yes (Hospitalization)
  Sender: FDA-Public Use
  Company Number: None

PATIENT
  Age: 4 Year
  Sex: Male
  Weight: 15.5 kg

DRUGS (6)
  1. CYCLOPHOSPHAMIDE [Suspect]
     Active Substance: CYCLOPHOSPHAMIDE
     Dates: start: 20210329, end: 20220308
  2. CYTARABINE [Suspect]
     Active Substance: CYTARABINE
     Dates: start: 20210329, end: 20220318
  3. METHOTREXATE [Suspect]
     Active Substance: METHOTREXATE
     Indication: Drug therapy
     Dates: start: 20210329, end: 20220315
  4. ONCASPAR [Suspect]
     Active Substance: PEGASPARGASE
     Dates: start: 20210329, end: 20220322
  5. THIOGUANINE ANHYDROUS [Suspect]
     Active Substance: THIOGUANINE ANHYDROUS
     Dates: start: 20210329, end: 20220321
  6. VINCRISTINE SULFATE [Suspect]
     Active Substance: VINCRISTINE SULFATE
     Dates: start: 20210329, end: 20220322

REACTIONS (7)
  - Fall [None]
  - Vomiting [None]
  - Head injury [None]
  - Unresponsive to stimuli [None]
  - Seizure [None]
  - Subdural haematoma [None]
  - Alanine aminotransferase increased [None]

NARRATIVE: CASE EVENT DATE: 20220324
